FAERS Safety Report 26178471 (Version 1)
Quarter: 2025Q4

REPORT INFORMATION
  Report Type: Report from Study
  Country: US (occurrence: US)
  Receive Date: 20251219
  Receipt Date: 20251219
  Transmission Date: 20260119
  Serious: Yes (Other)
  Sender: ABBVIE
  Company Number: US-ABBVIE-6595696

PATIENT
  Age: 9 Month
  Sex: Male

DRUGS (9)
  1. VENCLEXTA [Suspect]
     Active Substance: VENETOCLAX
     Indication: Acute myeloid leukaemia (in remission)
     Route: 048
     Dates: start: 20251206
  2. Lidocaine; Prilocaine [Concomitant]
     Indication: Product used for unknown indication
  3. CYCLOSPORINE [Concomitant]
     Active Substance: CYCLOSPORINE
     Indication: Product used for unknown indication
  4. BACTRIM [Concomitant]
     Active Substance: SULFAMETHOXAZOLE\TRIMETHOPRIM
     Indication: Product used for unknown indication
  5. VIDAZA [Concomitant]
     Active Substance: AZACITIDINE
     Indication: Product used for unknown indication
  6. VITAMIN D [Concomitant]
     Active Substance: VITAMIN D NOS
     Indication: Product used for unknown indication
  7. URSODIOL [Concomitant]
     Active Substance: URSODIOL
     Indication: Product used for unknown indication
  8. ACYCLOVIR [Concomitant]
     Active Substance: ACYCLOVIR
     Indication: Product used for unknown indication
  9. FLUCONAZOLE [Concomitant]
     Active Substance: FLUCONAZOLE
     Indication: Product used for unknown indication

REACTIONS (1)
  - Transfusion [Recovering/Resolving]

NARRATIVE: CASE EVENT DATE: 20251201
